FAERS Safety Report 10213439 (Version 2)
Quarter: 2014Q2

REPORT INFORMATION
  Report Type: Spontaneous
  Country: AU (occurrence: None)
  Receive Date: 20140529
  Receipt Date: 20140602
  Transmission Date: 20141212
  Serious: Yes (Hospitalization)
  Sender: FDA-Public Use
  Company Number: 2014AP003039

PATIENT
  Age: 26 Year
  Sex: Male

DRUGS (3)
  1. VENLAFAXINE [Suspect]
     Indication: DEPRESSION
     Route: 048
     Dates: start: 20140512
  2. LORAZEPAM (LORAZEPAM) [Concomitant]
     Route: 048
     Dates: start: 20140512
  3. TEMAZEPAM (TEMAZEPAM) [Concomitant]

REACTIONS (11)
  - Disorientation [None]
  - Dysarthria [None]
  - Anxiety [None]
  - Crying [None]
  - Emotional disorder [None]
  - Syncope [None]
  - Delirium [None]
  - Confusional state [None]
  - Balance disorder [None]
  - Asthenia [None]
  - Decreased appetite [None]
